FAERS Safety Report 9373077 (Version 1)
Quarter: 2013Q2

REPORT INFORMATION
  Report Type: Spontaneous
  Country: US (occurrence: US)
  Receive Date: 20130627
  Receipt Date: 20130627
  Transmission Date: 20140414
  Serious: Yes (Hospitalization)
  Sender: FDA-Public Use
  Company Number: US-PFIZER INC-AUR-APL-2011-05232

PATIENT
  Age: 32 Year
  Sex: 0

DRUGS (2)
  1. METOPROLOL TARTRATE [Suspect]
     Dosage: UNK
     Route: 048
  2. AMLODIPINE BESILATE [Suspect]
     Dosage: UNK
     Route: 048

REACTIONS (2)
  - Cardiogenic shock [Unknown]
  - Overdose [Unknown]
